FAERS Safety Report 9341377 (Version 1)
Quarter: 2013Q2

REPORT INFORMATION
  Report Type: Spontaneous
  Country: CA (occurrence: None)
  Receive Date: 20130610
  Receipt Date: 20130610
  Transmission Date: 20140414
  Serious: Yes (Hospitalization)
  Sender: FDA-Public Use
  Company Number: None

PATIENT
  Age: 2 Year
  Sex: Female
  Weight: 12.6 kg

DRUGS (6)
  1. DAUNORUBICIN [Suspect]
     Dates: end: 20130605
  2. DEXAMETHASONE [Suspect]
     Dates: end: 20130604
  3. METHOTREXATE [Suspect]
     Dates: end: 20130529
  4. PEG-L-ASPARAGINASE (PEGASPARGASE, ONCOSPAR) [Suspect]
     Dates: end: 20130525
  5. VINCRISTINE SULFATE [Suspect]
     Dates: end: 20130605
  6. CYTARABINE [Concomitant]
     Dates: end: 20130522

REACTIONS (7)
  - Diarrhoea [None]
  - Pyrexia [None]
  - Tachycardia [None]
  - Hypotension [None]
  - Culture positive [None]
  - Streptococcus test positive [None]
  - Clostridium test positive [None]
